FAERS Safety Report 10158530 (Version 1)
Quarter: 2014Q2

REPORT INFORMATION
  Report Type: Report from Study
  Country: US (occurrence: US)
  Receive Date: 20140507
  Receipt Date: 20140507
  Transmission Date: 20141212
  Serious: Yes (Life-Threatening, Hospitalization, Other)
  Sender: FDA-Public Use
  Company Number: PHEH2014US008940

PATIENT
  Sex: Female

DRUGS (10)
  1. EXFORGE [Suspect]
     Dosage: 1 DF,(160 MG VALS, 10 MG AMLO) UNK
  2. XARELTO [Concomitant]
     Dosage: UNK UKN, UNK
  3. DILANTIN [Concomitant]
     Dosage: UNK UKN, UNK
  4. TOPAMAX [Concomitant]
     Dosage: UNK UKN, UNK
  5. ZOCOR [Concomitant]
     Dosage: UNK UKN, UNK
  6. SYNTHROID [Concomitant]
     Dosage: 5 MG, UNK
  7. AMBIEN [Concomitant]
     Dosage: 5 MG, UNK
  8. KLONOPIN [Concomitant]
     Dosage: 5 MG, UNK
  9. PROTONIX [Concomitant]
  10. BABY ASPIRIN [Concomitant]
     Dosage: UNK UKN, UNK

REACTIONS (15)
  - Apparent death [Unknown]
  - Convulsion [Unknown]
  - Renal necrosis [Unknown]
  - Posterior reversible encephalopathy syndrome [Unknown]
  - Brain oedema [Unknown]
  - Dyspnoea [Unknown]
  - Hypertension [Unknown]
  - Renal failure [Unknown]
  - Pneumonia [Unknown]
  - Fall [Unknown]
  - Nasal septum deviation [Unknown]
  - Nasal polyps [Unknown]
  - Thrombosis [Unknown]
  - Nasal disorder [Unknown]
  - Hypersensitivity [Unknown]
